FAERS Safety Report 10255174 (Version 3)
Quarter: 2014Q3

REPORT INFORMATION
  Report Type: Spontaneous
  Country: JP (occurrence: JP)
  Receive Date: 20140624
  Receipt Date: 20140703
  Transmission Date: 20150326
  Serious: Yes (Hospitalization)
  Sender: FDA-Public Use
  Company Number: JP-AMGEN-JPNSP2014045629

PATIENT
  Age: 81 Year
  Sex: Female
  Weight: 44.8 kg

DRUGS (8)
  1. DECADRON                           /00016002/ [Concomitant]
     Active Substance: DEXAMETHASONE
     Dosage: 1.65 MG, Q2WEEKS
     Route: 041
     Dates: start: 20140130
  2. DERMOVATE [Concomitant]
     Active Substance: CLOBETASOL
     Dosage: UNK
     Route: 062
     Dates: start: 20140130
  3. POLARAMINE [Concomitant]
     Active Substance: DEXCHLORPHENIRAMINE MALEATE
     Dosage: 5 MG, Q2WEEKS
     Route: 041
     Dates: start: 20140130
  4. MINOCYCLINE                        /00232402/ [Concomitant]
     Indication: PROPHYLAXIS
     Dosage: 50 MG, UNK
     Route: 048
     Dates: start: 20140130
  5. VECTIBIX [Suspect]
     Active Substance: PANITUMUMAB
     Indication: COLON CANCER
     Dosage: 250 MG, Q2WEEKS
     Route: 041
     Dates: start: 20140130, end: 20140312
  6. VECTIBIX [Suspect]
     Active Substance: PANITUMUMAB
     Indication: METASTASES TO LIVER
     Dosage: 200 MG/KG, Q2WEEKS
     Route: 041
     Dates: start: 20140409, end: 20140409
  7. VECTIBIX [Suspect]
     Active Substance: PANITUMUMAB
     Dosage: 3.6 MG/KG,Q2WEEKS
     Route: 041
     Dates: start: 20140604, end: 20140604
  8. FEXOFENADINE                       /01314202/ [Concomitant]
     Indication: PRURITUS
     Dosage: 60 MG, UNK
     Route: 048
     Dates: start: 20140226

REACTIONS (3)
  - Drug hypersensitivity [Recovered/Resolved]
  - Acne [Unknown]
  - Alopecia [Unknown]

NARRATIVE: CASE EVENT DATE: 20140604
